FAERS Safety Report 22241070 (Version 2)
Quarter: 2023Q2

REPORT INFORMATION
  Report Type: Spontaneous
  Country: US (occurrence: US)
  Receive Date: 20230421
  Receipt Date: 20230622
  Transmission Date: 20230722
  Serious: Yes (Hospitalization, Other)
  Sender: FDA-Public Use
  Company Number: US-JAZZ PHARMACEUTICALS-2023-US-008755

PATIENT
  Age: 78 Year
  Sex: Female

DRUGS (1)
  1. ZEPZELCA [Suspect]
     Active Substance: LURBINECTEDIN
     Indication: Small cell lung cancer
     Dosage: 3.2 MILLIGRAM/KILOGRAM
     Dates: start: 202201

REACTIONS (3)
  - Cholecystitis acute [Unknown]
  - Clostridium difficile colitis [Unknown]
  - Disease progression [Unknown]

NARRATIVE: CASE EVENT DATE: 20220401
